FAERS Safety Report 9605048 (Version 1)
Quarter: 2013Q4

REPORT INFORMATION
  Report Type: Spontaneous
  Country: ES (occurrence: ES)
  Receive Date: 20131008
  Receipt Date: 20131008
  Transmission Date: 20140711
  Serious: Yes (Hospitalization, Other)
  Sender: FDA-Public Use
  Company Number: ES-PFIZER INC-2013286466

PATIENT
  Age: 53 Year
  Sex: Male

DRUGS (1)
  1. ATENOLOL [Suspect]
     Dosage: UNK
     Route: 065

REACTIONS (1)
  - Sclerosing encapsulating peritonitis [Unknown]
